FAERS Safety Report 10415474 (Version 4)
Quarter: 2015Q1

REPORT INFORMATION
  Report Type: Spontaneous
  Country: IT (occurrence: IT)
  Receive Date: 20140828
  Receipt Date: 20150128
  Transmission Date: 20150720
  Serious: Yes (Other)
  Sender: FDA-Public Use
  Company Number: IT-AMGEN-ITASP2014064351

PATIENT
  Age: 76 Year
  Sex: Male
  Weight: 51 kg

DRUGS (4)
  1. VECTIBIX [Suspect]
     Active Substance: PANITUMUMAB
     Indication: COLON NEOPLASM
     Dosage: 318 MG, CYCLIC
     Route: 042
     Dates: start: 20140715
  2. OXALIPLATIN KABI [Concomitant]
     Active Substance: OXALIPLATIN
     Indication: COLON NEOPLASM
     Dosage: 120 MG, UNK
     Route: 042
     Dates: start: 20140423, end: 20140729
  3. FLUOROURACIL TEVA [Concomitant]
     Active Substance: FLUOROURACIL
     Indication: COLON NEOPLASM
     Dosage: 3600 MG, UNK
     Route: 042
     Dates: start: 20140423, end: 20140729
  4. FLUOROURACIL TEVA [Concomitant]
     Active Substance: FLUOROURACIL
     Dosage: 600 MG, UNK
     Route: 042
     Dates: start: 20140423, end: 20140729

REACTIONS (2)
  - Stomatitis [Recovering/Resolving]
  - Rash pustular [Recovering/Resolving]

NARRATIVE: CASE EVENT DATE: 20140808
